FAERS Safety Report 14099780 (Version 1)
Quarter: 2017Q4

REPORT INFORMATION
  Report Type: Spontaneous
  Country: FR (occurrence: FR)
  Receive Date: 20171017
  Receipt Date: 20171017
  Transmission Date: 20180321
  Serious: Yes (Disabling)
  Sender: FDA-Public Use
  Company Number: FR-PFIZER INC-2017370742

PATIENT
  Age: 42 Year
  Sex: Male
  Weight: 120 kg

DRUGS (3)
  1. OXYCONTIN [Concomitant]
     Active Substance: OXYCODONE HYDROCHLORIDE
  2. OXYNORM [Concomitant]
     Active Substance: OXYCODONE HYDROCHLORIDE
  3. SUTENT [Suspect]
     Active Substance: SUNITINIB MALATE
     Indication: RENAL CANCER METASTATIC
     Dosage: 50 MG, DAILY(4 WEEKS ON, 2 WEEKS OFF)
     Route: 048

REACTIONS (3)
  - Bone pain [Recovering/Resolving]
  - Weight increased [Unknown]
  - Back pain [Recovering/Resolving]
